FAERS Safety Report 9800106 (Version 3)
Quarter: 2014Q2

REPORT INFORMATION
  Report Type: Spontaneous
  Country: GB (occurrence: GB)
  Receive Date: 20140106
  Receipt Date: 20140521
  Transmission Date: 20141212
  Serious: Yes (Other)
  Sender: FDA-Public Use
  Company Number: GB-MYLANLABS-2014S1000012

PATIENT
  Age: 41 Year
  Sex: Female

DRUGS (3)
  1. INDAPAMIDE [Suspect]
     Indication: HYPERTENSION
     Route: 048
     Dates: start: 2013, end: 2013
  2. ANTIVIRALS FOR TREATMENT OF HIV INFECTIONS, C [Concomitant]
     Indication: HIV INFECTION
  3. RAMIPRIL [Concomitant]
     Indication: PRODUCT USED FOR UNKNOWN INDICATION

REACTIONS (6)
  - Premature menopause [Recovered/Resolved]
  - Blood oestrogen decreased [Recovered/Resolved]
  - Abdominal pain upper [Recovered/Resolved]
  - Stress [Recovered/Resolved]
  - Breast atrophy [Recovered/Resolved]
  - Vulvovaginal dryness [Recovered/Resolved]
